FAERS Safety Report 4424990-6 (Version None)
Quarter: 2004Q3

REPORT INFORMATION
  Report Type: 
  Country: None (occurrence: None)
  Receive Date: 20040811
  Receipt Date: 20040811
  Transmission Date: 20050211
  Serious: Yes (Hospitalization)
  Sender: FDA-Public Use
  Company Number: None

PATIENT
  Age: 57 Year
  Sex: Female
  Weight: 288.4 kg

DRUGS (19)
  1. LEXAPRO [Suspect]
     Indication: DEPRESSION
     Dosage: 10 MG PO QD
     Route: 048
     Dates: start: 20040723, end: 20040731
  2. GLIPIZIDE [Concomitant]
  3. ALBUTEROL [Concomitant]
  4. PREDNISONE [Concomitant]
  5. POTASSIUM [Concomitant]
  6. AMITRIPTYLINE HCL [Concomitant]
  7. ASPIRIN [Concomitant]
  8. WESTCORT [Concomitant]
  9. ADVAIR DISKUS 100/50 [Concomitant]
  10. DIFLUCAN [Concomitant]
  11. ZYRTEC [Concomitant]
  12. METOPROLOL [Concomitant]
  13. LISINOPRIL [Concomitant]
  14. LASIX [Concomitant]
  15. XANAX [Concomitant]
  16. NORVASC [Concomitant]
  17. NYSTATIN [Concomitant]
  18. DICLOFENAC [Concomitant]
  19. CALCIUM W/VIT D [Concomitant]

REACTIONS (8)
  - DERMATITIS EXFOLIATIVE [None]
  - DRUG ERUPTION [None]
  - DYSPNOEA [None]
  - ERYTHEMA [None]
  - PRURITUS [None]
  - PYREXIA [None]
  - THROAT TIGHTNESS [None]
  - URTICARIA [None]
